FAERS Safety Report 11603357 (Version 1)
Quarter: 2015Q4

REPORT INFORMATION
  Report Type: Spontaneous
  Country: IT (occurrence: IT)
  Receive Date: 20151007
  Receipt Date: 20151007
  Transmission Date: 20160304
  Serious: Yes (Other)
  Sender: FDA-Public Use
  Company Number: IT-HOSPIRA-3025794

PATIENT
  Age: 39 Year
  Sex: Male

DRUGS (2)
  1. MEROPENEM. [Suspect]
     Active Substance: MEROPENEM
     Indication: PROPHYLAXIS
     Dosage: DAILY
     Route: 042
     Dates: start: 20150915, end: 20150921
  2. METRONIDAZOL                       /00012502/ [Concomitant]
     Indication: PRODUCT USED FOR UNKNOWN INDICATION

REACTIONS (1)
  - Hyperamylasaemia [Not Recovered/Not Resolved]

NARRATIVE: CASE EVENT DATE: 20150918
